FAERS Safety Report 6173659-9 (Version None)
Quarter: 2009Q2

REPORT INFORMATION
  Report Type: 
  Country: None (occurrence: None)
  Receive Date: 20090429
  Receipt Date: 20090429
  Transmission Date: 20091009
  Serious: Yes (Life-Threatening, Hospitalization)
  Sender: FDA-Public Use
  Company Number: None

PATIENT
  Sex: Male
  Weight: 92.5338 kg

DRUGS (2)
  1. GENGRAF [Suspect]
     Indication: PSORIASIS
     Dosage: 10X DAY
     Dates: start: 20071117, end: 20080201
  2. ENBREL [Suspect]
     Indication: PSORIASIS
     Dosage: 50MG INJECTION 2X WK
     Dates: start: 20080201, end: 20080420

REACTIONS (3)
  - HERPES ZOSTER [None]
  - IMMUNE SYSTEM DISORDER [None]
  - PNEUMONIA [None]
